FAERS Safety Report 8495591-8 (Version None)
Quarter: 2012Q3

REPORT INFORMATION
  Report Type: 
  Country: None (occurrence: None)
  Receive Date: 20120709
  Receipt Date: 20120702
  Transmission Date: 20120928
  Serious: Yes (Death, Life-Threatening, Hospitalization)
  Sender: FDA-Public Use
  Company Number: JP-ASTRAZENECA-2012SE36459

PATIENT
  Age: 82 Year
  Sex: Male

DRUGS (13)
  1. CONCENTRATED HUMAN BLOOD PLATELET [Concomitant]
     Dates: start: 20120516, end: 20120528
  2. OMEPRAZOLE [Concomitant]
     Indication: GASTRIC ULCER
     Dates: start: 20120517
  3. PREDNISOLONE [Concomitant]
     Indication: ANTI-NEUTROPHIL CYTOPLASMIC ANTIBODY POSITIVE VASCULITIS
     Dates: start: 20120517, end: 20120526
  4. MEROPENEM [Suspect]
     Route: 042
     Dates: start: 20120521, end: 20120521
  5. MEROPENEM [Suspect]
     Route: 042
     Dates: start: 20120522, end: 20120528
  6. VANCOMYCIN HYDROCHLORIDE [Concomitant]
     Indication: STAPHYLOCOCCAL SEPSIS
     Dates: start: 20120516, end: 20120516
  7. MEROPENEM [Suspect]
     Route: 042
     Dates: start: 20120516, end: 20120516
  8. CONCENTRATED HUMAN RED BLOOD CELLS [Concomitant]
     Dates: start: 20120419, end: 20120528
  9. IMMUNE GLOBULIN (HUMAN) [Concomitant]
     Indication: INFECTION
     Dates: start: 20120516, end: 20120518
  10. MEROPENEM [Suspect]
     Indication: SEPSIS
     Route: 042
     Dates: start: 20120331, end: 20120409
  11. RECOMODULIN [Concomitant]
     Indication: DISSEMINATED INTRAVASCULAR COAGULATION
     Dates: start: 20120516, end: 20120527
  12. MEROPENEM [Suspect]
     Route: 042
     Dates: start: 20120517, end: 20120520
  13. CLINDAMYCIN [Concomitant]
     Indication: GAS GANGRENE
     Dates: start: 20120516, end: 20120520

REACTIONS (4)
  - DEPRESSED LEVEL OF CONSCIOUSNESS [None]
  - THROMBOCYTOPENIA [None]
  - RESPIRATORY FAILURE [None]
  - PNEUMONIA [None]
